FAERS Safety Report 16786108 (Version 1)
Quarter: 2019Q3

REPORT INFORMATION
  Report Type: Spontaneous
  Country: US (occurrence: US)
  Receive Date: 20190909
  Receipt Date: 20190909
  Transmission Date: 20191005
  Serious: Yes (Death, Hospitalization)
  Sender: FDA-Public Use
  Company Number: US-AKORN PHARMACEUTICALS-2019AKN01887

PATIENT

DRUGS (1)
  1. ISOTRETINOIN. [Suspect]
     Active Substance: ISOTRETINOIN
     Dosage: UNK
     Route: 065

REACTIONS (3)
  - Aplastic anaemia [Not Recovered/Not Resolved]
  - Multiple organ dysfunction syndrome [Fatal]
  - Septic shock [Not Recovered/Not Resolved]
